FAERS Safety Report 13952939 (Version 2)
Quarter: 2017Q4

REPORT INFORMATION
  Report Type: Spontaneous
  Country: US (occurrence: US)
  Receive Date: 20170911
  Receipt Date: 20171122
  Transmission Date: 20180320
  Serious: No
  Sender: FDA-Public Use
  Company Number: US-009507513-1709USA000008

PATIENT
  Age: 15 Year
  Sex: Female
  Weight: 87.08 kg

DRUGS (2)
  1. NEXPLANON [Suspect]
     Active Substance: ETONOGESTREL
     Dosage: ANOTHER ROD
     Route: 059
     Dates: start: 20170927
  2. NEXPLANON [Suspect]
     Active Substance: ETONOGESTREL
     Indication: CONTRACEPTION
     Dosage: 68 MG, ONE ROD PER THREE YEARS IN THE LEFT ARM
     Route: 059
     Dates: start: 20170829, end: 20170829

REACTIONS (4)
  - Wound [Unknown]
  - Implant site haemorrhage [Unknown]
  - Device expulsion [Recovered/Resolved]
  - Device difficult to use [Recovered/Resolved]

NARRATIVE: CASE EVENT DATE: 20170829
